FAERS Safety Report 13358311 (Version 1)
Quarter: 2017Q1

REPORT INFORMATION
  Report Type: Report from Study
  Country: ES (occurrence: ES)
  Receive Date: 20170322
  Receipt Date: 20170322
  Transmission Date: 20170429
  Serious: Yes (Other)
  Sender: FDA-Public Use
  Company Number: ES-EMD SERONO-8149479

PATIENT
  Age: 13 Year
  Sex: Female
  Weight: 43 kg

DRUGS (1)
  1. SAIZEN [Suspect]
     Active Substance: SOMATROPIN
     Indication: BODY HEIGHT BELOW NORMAL
     Dates: start: 20160920, end: 20170219

REACTIONS (3)
  - Papilloedema [Unknown]
  - Off label use [Recovered/Resolved]
  - Retinal degeneration [Unknown]

NARRATIVE: CASE EVENT DATE: 20160920
